FAERS Safety Report 6854339-0 (Version None)
Quarter: 2010Q3

REPORT INFORMATION
  Report Type: 
  Country: None (occurrence: None)
  Receive Date: 20100717
  Receipt Date: 20080103
  Transmission Date: 20110219
  Serious: No
  Sender: FDA-Public Use
  Company Number: US-PFIZER INC-2008001767

PATIENT
  Sex: Female
  Weight: 73.181 kg

DRUGS (3)
  1. CHANTIX [Suspect]
     Indication: SMOKING CESSATION THERAPY
     Dates: start: 20070604
  2. DEPO-PROVERA [Concomitant]
  3. MULTI-VITAMINS [Concomitant]

REACTIONS (4)
  - ANTINUCLEAR ANTIBODY INCREASED [None]
  - ARTHRALGIA [None]
  - PRURITUS [None]
  - RASH [None]
